FAERS Safety Report 5154777-0 (Version None)
Quarter: 2006Q4

REPORT INFORMATION
  Report Type: 
  Country: None (occurrence: None)
  Receive Date: 20061115
  Receipt Date: 20061115
  Transmission Date: 20070319
  Serious: Yes (Other)
  Sender: FDA-Public Use
  Company Number: None

PATIENT
  Sex: Male
  Weight: 62.27 kg

DRUGS (1)
  1. MORPHINE [Suspect]
     Indication: ANALGESIC EFFECT
     Dosage: 2MG  EVERY 3 HOURS AS  N    IV
     Route: 042
     Dates: start: 20061101, end: 20061106

REACTIONS (1)
  - PRURITUS [None]
